FAERS Safety Report 4838365-9 (Version None)
Quarter: 2005Q4

REPORT INFORMATION
  Report Type: 
  Country: None (occurrence: None)
  Receive Date: 20051123
  Receipt Date: 20051110
  Transmission Date: 20060501
  Serious: Yes (Other)
  Sender: FDA-Public Use
  Company Number: 2005153861

PATIENT
  Age: 54 Year
  Sex: Female
  Weight: 67.1324 kg

DRUGS (5)
  1. CLINDAMYCIN PHOSPHATE [Suspect]
     Indication: PROPHYLAXIS
     Dosage: INTRAVENOUS
     Route: 042
     Dates: start: 20050912, end: 20050913
  2. CLINDAMYCIN HYDROCHLORIDE [Suspect]
     Indication: PROPHYLAXIS
     Dosage: (TID), ORAL
     Route: 048
     Dates: start: 20050913, end: 20050919
  3. ECOTRIN (ACETYLSALICYLIC ACID) [Concomitant]
  4. INDERALL-LA (PROPRANOLOL HYDROCHLORIDE) [Concomitant]
  5. BUSPAR [Concomitant]

REACTIONS (16)
  - ABDOMINAL PAIN UPPER [None]
  - ABNORMAL FAECES [None]
  - ACTIVITIES OF DAILY LIVING IMPAIRED [None]
  - ANOREXIA [None]
  - CLOSTRIDIUM DIFFICILE TOXIN TEST POSITIVE [None]
  - DEHYDRATION [None]
  - DIARRHOEA [None]
  - DRY MOUTH [None]
  - FEAR [None]
  - FLATULENCE [None]
  - HAEMATOCHEZIA [None]
  - LIP DRY [None]
  - MUCOUS STOOLS [None]
  - PAINFUL DEFAECATION [None]
  - PROCEDURAL PAIN [None]
  - WEIGHT DECREASED [None]
